FAERS Safety Report 7801399-6 (Version None)
Quarter: 2011Q4

REPORT INFORMATION
  Report Type: 
  Country: None (occurrence: None)
  Receive Date: 20111006
  Receipt Date: 20111006
  Transmission Date: 20120403
  Serious: Yes (Hospitalization)
  Sender: FDA-Public Use
  Company Number: None

PATIENT
  Age: 52 Year
  Sex: Female
  Weight: 93.6 kg

DRUGS (9)
  1. LIPITOR [Concomitant]
  2. NYSTATIN [Concomitant]
  3. ACCUPRIL [Suspect]
     Indication: HYPERTENSION
     Dosage: 20MG QDAY PO CHRONIC
     Route: 048
  4. TRAZODONE HYDROCHLORIDE [Concomitant]
  5. METFORMIN HYDROCHLORIDE [Concomitant]
  6. ATENOLOL [Concomitant]
  7. HYDROCHLOROTHIAZIDE [Concomitant]
  8. CLARITIN [Concomitant]
  9. CYMBALTA [Concomitant]

REACTIONS (1)
  - ANGIOEDEMA [None]
